FAERS Safety Report 15659941 (Version 3)
Quarter: 2019Q1

REPORT INFORMATION
  Report Type: Spontaneous
  Country: AU (occurrence: AU)
  Receive Date: 20181127
  Receipt Date: 20190115
  Transmission Date: 20190417
  Serious: Yes (Hospitalization, Other)
  Sender: FDA-Public Use
  Company Number: AU-GW PHARMA-201805AUGW0110

PATIENT

DRUGS (11)
  1. EPIDIOLEX [Suspect]
     Active Substance: CANNABIDIOL
     Indication: GENE MUTATION
  2. MIDAZOLAM [Concomitant]
     Active Substance: MIDAZOLAM HYDROCHLORIDE
     Indication: EARLY INFANTILE EPILEPTIC ENCEPHALOPATHY WITH BURST-SUPPRESSION
     Dosage: 5 MILLIGRAM, PRN
     Route: 045
  3. MELATONIN [Concomitant]
     Active Substance: MELATONIN
     Indication: PRODUCT USED FOR UNKNOWN INDICATION
     Dosage: 6 MG
     Route: 048
     Dates: start: 2014
  4. FRUITIVITS [Concomitant]
     Indication: SUPPLEMENTATION THERAPY
     Dosage: 6 GRAM, QD
     Route: 048
     Dates: start: 201607
  5. POTASSIUM CITRATE. [Concomitant]
     Active Substance: POTASSIUM CITRATE
     Indication: NEPHROLITHIASIS
     Dosage: 15 ML, BID
     Route: 048
  6. EPILIM [Concomitant]
     Active Substance: VALPROATE SODIUM
     Indication: EPILEPSY
     Dosage: 300 MG, BID
     Route: 048
     Dates: start: 2015
  7. EPIDIOLEX [Suspect]
     Active Substance: CANNABIDIOL
     Indication: EARLY INFANTILE EPILEPTIC ENCEPHALOPATHY WITH BURST-SUPPRESSION
     Dosage: 22.2 MG/KG, 400 MILLIGRAM, QD
     Route: 048
     Dates: start: 20170720
  8. MELATONIN [Concomitant]
     Active Substance: MELATONIN
     Dosage: 6 MG
     Dates: start: 2015
  9. EPILIM [Concomitant]
     Active Substance: VALPROATE SODIUM
     Dosage: UNK UNK, BID
     Dates: start: 2014
  10. PANADOL [Concomitant]
     Active Substance: ACETAMINOPHEN
     Indication: PAIN
     Dosage: 2.5 MILLILITER, Q6H PRN
     Route: 065
  11. MOVICOL [Concomitant]
     Active Substance: POLYETHYLENE GLYCOL 3350\POTASSIUM CHLORIDE\SODIUM BICARBONATE\SODIUM CHLORIDE
     Indication: PRODUCT USED FOR UNKNOWN INDICATION
     Dosage: 13.7 GRAM, QD
     Route: 065

REACTIONS (1)
  - Hypercalcaemia [Recovered/Resolved]

NARRATIVE: CASE EVENT DATE: 20180525
